FAERS Safety Report 16133237 (Version 1)
Quarter: 2019Q1

REPORT INFORMATION
  Report Type: Spontaneous
  Country: ES (occurrence: ES)
  Receive Date: 20190329
  Receipt Date: 20190329
  Transmission Date: 20190418
  Serious: Yes (Life-Threatening, Hospitalization)
  Sender: FDA-Public Use
  Company Number: ES-ROCHE-2285925

PATIENT
  Age: 63 Year
  Sex: Female
  Weight: 57 kg

DRUGS (3)
  1. PACLITAXEL. [Suspect]
     Active Substance: PACLITAXEL
     Indication: CERVIX CARCINOMA
     Dosage: LAST DOSE ON 03/DEC/2018
     Route: 042
     Dates: start: 20181030
  2. BEVACIZUMAB. [Suspect]
     Active Substance: BEVACIZUMAB
     Indication: CERVIX CARCINOMA
     Dosage: LAST DOSE ON 03/DEC/2018
     Route: 042
     Dates: start: 20181030
  3. CISPLATINO [Suspect]
     Active Substance: CISPLATIN
     Indication: CERVIX CARCINOMA
     Dosage: LAST DOSE ON 03/DEC/2018
     Route: 042
     Dates: start: 20181030

REACTIONS (2)
  - Pancytopenia [Recovering/Resolving]
  - Enteritis [Recovered/Resolved]

NARRATIVE: CASE EVENT DATE: 20181211
